FAERS Safety Report 8387474-9 (Version None)
Quarter: 2012Q2

REPORT INFORMATION
  Report Type: 
  Country: None (occurrence: None)
  Receive Date: 20120525
  Receipt Date: 20120521
  Transmission Date: 20120825
  Serious: Yes (Other)
  Sender: FDA-Public Use
  Company Number: PHFR2011GB00957

PATIENT
  Sex: Male

DRUGS (3)
  1. CLOZARIL [Suspect]
     Indication: SCHIZOPHRENIA
     Dosage: 450 MG, QD
     Route: 048
     Dates: start: 20101117, end: 20101224
  2. CLOZARIL [Suspect]
     Dosage: UNK MG, UNK
     Route: 048
     Dates: start: 20110112
  3. CLOZARIL [Suspect]
     Dosage: UNK
     Dates: start: 20110407

REACTIONS (3)
  - PERIORBITAL OEDEMA [None]
  - ANAEMIA [None]
  - HAEMORRHOIDS [None]
